FAERS Safety Report 10023495 (Version 2)
Quarter: 2014Q1

REPORT INFORMATION
  Report Type: Spontaneous
  Country: US (occurrence: None)
  Receive Date: 20131231
  Receipt Date: 20140116
  Transmission Date: 20141002
  Serious: Yes (Other)
  Sender: FDA-Public Use
  Company Number: DEP_01815_2013

PATIENT
  Age: 35 Year
  Sex: Female
  Weight: 48.54 kg

DRUGS (6)
  1. LAZANDA [Suspect]
     Indication: BREAKTHROUGH PAIN
     Dosage: PRN
     Route: 045
     Dates: start: 20130503
  2. FENTANYL [Concomitant]
  3. OXYCODONE [Concomitant]
  4. LYRICA [Concomitant]
  5. FIORINAL /00090401/ [Concomitant]
  6. ACTIQ [Concomitant]

REACTIONS (2)
  - Drug ineffective [None]
  - Product quality issue [None]
